FAERS Safety Report 17335337 (Version 1)
Quarter: 2020Q1

REPORT INFORMATION
  Report Type: Spontaneous
  Country: CN (occurrence: CN)
  Receive Date: 20200128
  Receipt Date: 20200128
  Transmission Date: 20200409
  Serious: Yes (Other)
  Sender: FDA-Public Use
  Company Number: CN-BAXTER-2020BAX001559

PATIENT
  Age: 55 Year
  Sex: Female
  Weight: 55 kg

DRUGS (2)
  1. 0.9% SODIUM CHLORIDE INJECTION [Suspect]
     Active Substance: SODIUM CHLORIDE
     Indication: MEDICATION DILUTION
     Dosage: HOLOXAN INJECTION 2 G + NS, AT 60 DROPS/MIN
     Route: 041
     Dates: start: 20190925, end: 20190925
  2. HOLOXAN [Suspect]
     Active Substance: IFOSFAMIDE
     Indication: LEIOMYOSARCOMA
     Dosage: HOLOXAN INJECTION + NS 500ML, AT 60 DROPS/MIN
     Route: 041
     Dates: start: 20190925, end: 20190925

REACTIONS (2)
  - Dyspnoea [Recovering/Resolving]
  - Hyperhidrosis [Recovering/Resolving]

NARRATIVE: CASE EVENT DATE: 20190925
